FAERS Safety Report 5319157-3 (Version None)
Quarter: 2007Q1

REPORT INFORMATION
  Report Type: 
  Country: None (occurrence: None)
  Receive Date: 20070208
  Receipt Date: 20060302
  Transmission Date: 20070707
  Serious: Yes (Hospitalization, Other)
  Sender: FDA-Public Use
  Company Number: 20060302VANCO0180

PATIENT
  Age: 19 Year
  Sex: Female

DRUGS (3)
  1. VANCOMYCIN HCL [Suspect]
     Dosage: ORAL
     Route: 048
  2. VANCOCIN HYDROCHLORIDE (VANCOMYCIN HYDROCHLORIDE) [Suspect]
     Dosage: INTRAVENOUS
     Route: 042
  3. NATISEDINE (PHENOBARBITAL SALT WITH QUINIDINE) [Suspect]

REACTIONS (1)
  - TOXIC EPIDERMAL NECROLYSIS [None]
